FAERS Safety Report 9665941 (Version 5)
Quarter: 2013Q4

REPORT INFORMATION
  Report Type: Report from Study
  Country: CA (occurrence: CA)
  Receive Date: 20131104
  Receipt Date: 20131202
  Transmission Date: 20140711
  Serious: Yes (Death, Life-Threatening, Hospitalization)
  Sender: FDA-Public Use
  Company Number: CA-009507513-1311CAN000564

PATIENT
  Age: 48 Year
  Sex: Female
  Weight: 74.3 kg

DRUGS (21)
  1. VINTAFOLIDE [Suspect]
     Indication: OVARIAN CANCER
     Dosage: 2.5 MG, Q3W
     Route: 042
     Dates: start: 20130729, end: 20131021
  2. VINTAFOLIDE [Suspect]
     Dosage: 2.5 MG, DAY 1, 3, 5, 15, 17 AND 19)
     Route: 042
     Dates: start: 20130729, end: 20130802
  3. PEGYLATED LIPOSOMAL DOXORUBICIN [Suspect]
     Indication: OVARIAN CANCER
     Dosage: 77 MG, ONCE EVERY 4 WEEKS
     Route: 042
     Dates: start: 20130729, end: 20131021
  4. EC20-FOLATE(+)TECHNETIUMN CH.AG [Suspect]
     Indication: SINGLE PHOTON EMISSION COMPUTERISED TOMOGRAM
     Dosage: 1.7 ML, ONCE
     Route: 042
     Dates: start: 20130717, end: 20130717
  5. FOLIC ACID [Suspect]
     Indication: SINGLE PHOTON EMISSION COMPUTERISED TOMOGRAM
     Dosage: 0.5 MG, ONCE
     Route: 042
     Dates: start: 20130717, end: 20130717
  6. GRANISETRON [Suspect]
     Indication: PROPHYLAXIS OF NAUSEA AND VOMITING
     Dosage: 2 MG, POST CHEMO
     Route: 048
     Dates: start: 20130729
  7. DEXAMETHASONE [Suspect]
     Indication: PROPHYLAXIS OF NAUSEA AND VOMITING
     Dosage: 20 MG, POST CHEMO
     Route: 048
     Dates: start: 20130730
  8. METOCLOPRAMIDE [Suspect]
     Indication: PROPHYLAXIS OF NAUSEA AND VOMITING
     Dosage: 10 MG, PRE CHEMO
     Route: 048
  9. UBIDECARENONE [Concomitant]
     Indication: SUPPLEMENTATION THERAPY
     Dosage: 30 MG
     Route: 048
     Dates: start: 2010
  10. LIPITAC [Concomitant]
     Indication: SUPPLEMENTATION THERAPY
     Dosage: UNK
     Route: 048
     Dates: start: 201307
  11. RANITIDINE [Concomitant]
     Indication: GASTROOESOPHAGEAL REFLUX DISEASE
     Dosage: UNK
     Route: 048
     Dates: start: 20130320
  12. RANITIDINE [Concomitant]
     Indication: DYSPEPSIA
  13. RESTORALAX [Concomitant]
     Indication: BOWEL MOVEMENT IRREGULARITY
     Dosage: UNK
     Route: 048
     Dates: start: 20130729
  14. SYMBICORT [Concomitant]
     Indication: ASTHMA
     Dosage: UNK
     Route: 055
     Dates: start: 2001
  15. VENTOLIN (ALBUTEROL SULFATE) [Concomitant]
     Indication: ASTHMA
     Dosage: 1-2 PUFF
     Route: 055
     Dates: start: 1990
  16. ERGOCALCIFEROL [Concomitant]
     Indication: SUPPLEMENTATION THERAPY
     Dosage: UNK
     Route: 048
     Dates: start: 20130729
  17. LACTOBACILLUS ACIDOPHILUS [Concomitant]
     Indication: SUPPLEMENTATION THERAPY
     Dosage: UNK
     Route: 048
     Dates: start: 20130729
  18. ZOPICLONE [Concomitant]
     Indication: INSOMNIA
     Dosage: UNK
     Route: 048
     Dates: start: 20130801
  19. DEXAMETHASONE [Concomitant]
     Indication: ABDOMINAL DISTENSION
     Dosage: UNK
     Route: 048
     Dates: start: 20130724
  20. DEXAMETHASONE [Concomitant]
     Indication: SMALL INTESTINAL OBSTRUCTION
     Dosage: UNK
     Route: 042
     Dates: start: 20130806
  21. OCTREOTIDE [Concomitant]
     Indication: DYSPNOEA
     Dosage: UNK
     Route: 058
     Dates: start: 20130810

REACTIONS (1)
  - Atypical pneumonia [Fatal]
